FAERS Safety Report 15552483 (Version 10)
Quarter: 2019Q2

REPORT INFORMATION
  Report Type: Report from Study
  Country: US (occurrence: US)
  Receive Date: 20181025
  Receipt Date: 20190426
  Transmission Date: 20190711
  Serious: Yes (Hospitalization)
  Sender: FDA-Public Use
  Company Number: US-ACTELION-A-NJ2018-180613

PATIENT
  Age: 75 Year
  Sex: Female
  Weight: 71.66 kg

DRUGS (7)
  1. UPTRAVI [Suspect]
     Active Substance: SELEXIPAG
     Indication: PULMONARY HYPERTENSION
     Dosage: 1600 MCG, BID
     Route: 048
  2. OXYGEN. [Concomitant]
     Active Substance: OXYGEN
  3. OPSUMIT [Suspect]
     Active Substance: MACITENTAN
     Indication: PULMONARY HYPERTENSION
     Dosage: 10 MG, QD
     Route: 048
     Dates: start: 20180416
  4. TORSEMIDE. [Concomitant]
     Active Substance: TORSEMIDE
     Dosage: UNK
     Dates: start: 20181029
  5. DILTIAZEM. [Concomitant]
     Active Substance: DILTIAZEM
  6. ADCIRCA [Concomitant]
     Active Substance: TADALAFIL
     Dosage: UNK
  7. ELIQUIS [Concomitant]
     Active Substance: APIXABAN

REACTIONS (25)
  - White blood cell count decreased [Not Recovered/Not Resolved]
  - Vascular pain [Recovering/Resolving]
  - Anaemia [Unknown]
  - Sleep apnoea syndrome [Unknown]
  - Renal impairment [Not Recovered/Not Resolved]
  - Pulmonary hypertension [Recovering/Resolving]
  - Influenza [Unknown]
  - Dizziness [Unknown]
  - Renal failure [Not Recovered/Not Resolved]
  - Gait disturbance [Unknown]
  - Hypotension [Unknown]
  - Scleroderma [Unknown]
  - Heart valve incompetence [Unknown]
  - Condition aggravated [Unknown]
  - Pneumonia [Recovered/Resolved]
  - Depression [Unknown]
  - Oxygen therapy [Unknown]
  - Soft tissue mass [Unknown]
  - Hospitalisation [Not Recovered/Not Resolved]
  - Fluid retention [Recovering/Resolving]
  - Dyspnoea [Unknown]
  - Hypertension [Recovering/Resolving]
  - Pyrexia [Unknown]
  - Systemic lupus erythematosus [Unknown]
  - Presyncope [Unknown]

NARRATIVE: CASE EVENT DATE: 201810
